FAERS Safety Report 8310169 (Version 3)
Quarter: 2012Q4

REPORT INFORMATION
  Report Type: Report from Study
  Country: FR (occurrence: FR)
  Receive Date: 20111223
  Receipt Date: 20121207
  Transmission Date: 20130627
  Serious: Yes (Death, Hospitalization)
  Sender: FDA-Public Use
  Company Number: FR-SANOFI-AVENTIS-2011SA083141

PATIENT
  Age: 46 Year
  Sex: Male

DRUGS (11)
  1. DOCETAXEL [Suspect]
     Indication: NON-SMALL CELL LUNG CANCER
     Route: 042
     Dates: start: 20111018, end: 20111108
  2. ERLOTINIB [Suspect]
     Indication: NON-SMALL CELL LUNG CANCER
     Route: 048
     Dates: start: 20111019, end: 20111121
  3. ROSUVASTATIN [Concomitant]
     Dates: start: 201103
  4. EFFERALGAN [Concomitant]
     Dates: start: 201103
  5. KARDEGIC [Concomitant]
     Dates: start: 201103
  6. PARIET [Concomitant]
     Dates: start: 201103
  7. STABLON [Concomitant]
  8. SERETIDE [Concomitant]
     Dates: start: 201103
  9. SKENAN [Concomitant]
     Dates: start: 201103
  10. ACTISKENAN [Concomitant]
     Dates: start: 201103
  11. XANAX [Concomitant]

REACTIONS (4)
  - General physical health deterioration [Fatal]
  - General physical health deterioration [Recovered/Resolved with Sequelae]
  - Pain [Fatal]
  - Dyspnoea [Fatal]
